FAERS Safety Report 8732251 (Version 2)
Quarter: 2013Q2

REPORT INFORMATION
  Report Type: Spontaneous
  Country: US (occurrence: US)
  Receive Date: 20120820
  Receipt Date: 20130503
  Transmission Date: 20140414
  Serious: Yes (Other)
  Sender: FDA-Public Use
  Company Number: US-ASTRAZENECA-2012SE56341

PATIENT
  Age: 44 Year
  Sex: Female

DRUGS (22)
  1. NEXIUM [Suspect]
     Route: 048
     Dates: start: 20120417
  2. SEROQUEL [Suspect]
     Route: 048
  3. MORPHINE DERIVATIVES [Suspect]
     Route: 065
  4. ASPIRIN [Concomitant]
     Route: 048
  5. NEURONTIN [Concomitant]
     Route: 048
  6. LIDODERM [Concomitant]
     Dosage: 5 %  PATCH, ON 12HRS
     Route: 061
  7. ALORA [Concomitant]
     Dosage: 0.075 MG/ 24 HR PATCH, BIWEEKELY
     Route: 062
     Dates: start: 20120516
  8. CETIRIZINE HCL [Concomitant]
     Route: 048
     Dates: start: 20120711
  9. FLEXERIL [Concomitant]
     Route: 048
     Dates: start: 20120227
  10. BUSPIRONE HCL [Concomitant]
     Route: 048
     Dates: start: 20120203
  11. VESICARE [Concomitant]
     Route: 048
     Dates: start: 20111208
  12. MIRALAX [Concomitant]
     Route: 048
     Dates: start: 20110912
  13. EPIPEN 2-PAK [Concomitant]
     Dosage: 0.3MG/0.3ML, 1 DEVICE AS DIRECTED
     Dates: start: 20110606
  14. VENTOLIN HFA [Concomitant]
     Indication: DYSPNOEA
     Dosage: 2 PUFFS, EVERY 4 HRS, TWO TIMES A DAY, AS NEEDED
     Route: 055
     Dates: start: 20110606
  15. FLOVENT HFA [Concomitant]
     Dosage: 220MCG/ACT AEROSOL, 1 PUFFS, TWO TIMES A DAY
     Route: 055
     Dates: start: 20110606
  16. TYLENOL WITH CODEINE [Concomitant]
     Indication: PAIN
     Dosage: 300-30 MG, TABLET, TWO TIMES A DAY
     Route: 048
     Dates: start: 20120223
  17. FLONASE [Concomitant]
     Dosage: 50 MCG, 1 NASAL SPRAY EACH NOSTRIL ONCE DAILY
     Route: 045
     Dates: start: 20110606
  18. ALBUTEROL SULFATE [Concomitant]
     Indication: DYSPNOEA
     Dosage: 2.5 MG/ 3 ML, 1 INHALATION UNIT, DOSE EVERY 4 HRS AS NEEDED
     Route: 055
     Dates: start: 20110606
  19. SINGULAIR [Concomitant]
     Route: 048
     Dates: start: 20110606
  20. VERAPAMIL HCL [Concomitant]
     Route: 048
     Dates: start: 20120309
  21. CELEBREX [Concomitant]
     Route: 048
     Dates: start: 20120305
  22. LAMICTAL [Concomitant]
     Route: 048
     Dates: start: 20120417

REACTIONS (57)
  - Deep vein thrombosis [Unknown]
  - Neuropathy peripheral [Unknown]
  - Rhinitis allergic [Unknown]
  - Asthma [Unknown]
  - Acute sinusitis [Unknown]
  - Bronchitis [Unknown]
  - Urinary tract infection [Unknown]
  - Patellofemoral pain syndrome [Unknown]
  - Gastrooesophageal reflux disease [Unknown]
  - Ligament sprain [Unknown]
  - Bipolar disorder [Unknown]
  - Mononeuritis [Unknown]
  - Type 2 diabetes mellitus [Unknown]
  - Hypoglycaemia [Unknown]
  - Enthesopathy [Unknown]
  - Generalised anxiety disorder [Unknown]
  - Neuritis [Unknown]
  - Radiculitis [Unknown]
  - Restless legs syndrome [Unknown]
  - Osteoarthritis [Unknown]
  - Muscle spasms [Unknown]
  - Thrombophlebitis [Unknown]
  - Melaena [Unknown]
  - Urinary incontinence [Unknown]
  - Anaemia [Unknown]
  - Gastroenteritis [Unknown]
  - Eustachian tube disorder [Unknown]
  - Oedema [Unknown]
  - Otitis media acute [Unknown]
  - Panic disorder [Unknown]
  - Palpitations [Unknown]
  - Neck pain [Unknown]
  - Essential hypertension [Unknown]
  - Arteriosclerosis [Unknown]
  - Intervertebral disc degeneration [Unknown]
  - Menopause [Unknown]
  - Haematuria [Unknown]
  - Gastritis [Unknown]
  - Gastroduodenitis [Unknown]
  - Cellulitis [Unknown]
  - Abscess [Unknown]
  - Vulvovaginitis [Unknown]
  - Complex regional pain syndrome [Unknown]
  - Tension headache [Unknown]
  - Dermatitis atopic [Unknown]
  - Carpal tunnel syndrome [Unknown]
  - Sacroiliitis [Unknown]
  - Bursitis [Unknown]
  - Cystitis [Unknown]
  - Pain in extremity [Unknown]
  - Rash [Unknown]
  - Myalgia [Unknown]
  - Insomnia [Unknown]
  - Abdominal pain lower [Unknown]
  - Arthralgia [Unknown]
  - Depression [Unknown]
  - Urticaria [Unknown]
